FAERS Safety Report 18651399 (Version 1)
Quarter: 2020Q4

REPORT INFORMATION
  Report Type: Spontaneous
  Country: US (occurrence: US)
  Receive Date: 20201223
  Receipt Date: 20201223
  Transmission Date: 20210114
  Serious: No
  Sender: FDA-Public Use
  Company Number: NVSC2020US340575

PATIENT
  Age: 69 Year
  Sex: Female

DRUGS (1)
  1. VOLTAREN [Suspect]
     Active Substance: DICLOFENAC SODIUM
     Indication: ARTHRITIS
     Dosage: UNK(4 TIMES AND 2 TIMES MAYBE 3 TIMES)
     Route: 065
     Dates: start: 20201212, end: 20201213

REACTIONS (2)
  - Inappropriate schedule of product administration [Unknown]
  - Illness [Recovering/Resolving]

NARRATIVE: CASE EVENT DATE: 20201213
